FAERS Safety Report 5961708-X (Version None)
Quarter: 2008Q4

REPORT INFORMATION
  Report Type: 
  Country: None (occurrence: None)
  Receive Date: 20081114
  Receipt Date: 20080725
  Transmission Date: 20090506
  Serious: No
  Sender: FDA-Public Use
  Company Number: WAES 0807USA05106

PATIENT
  Age: 52 Year
  Sex: Female
  Weight: 47.1741 kg

DRUGS (3)
  1. ISENTRESS [Suspect]
     Indication: HIV INFECTION
     Dosage: 400 MG/ BID/ PO
     Route: 048
  2. VIREAD [Concomitant]
  3. ZERIT [Concomitant]

REACTIONS (3)
  - CD4 LYMPHOCYTES DECREASED [None]
  - SQUAMOUS CELL CARCINOMA OF SKIN [None]
  - VIRAL LOAD DECREASED [None]
